FAERS Safety Report 5081927-7 (Version None)
Quarter: 2006Q3

REPORT INFORMATION
  Report Type: 
  Country: None (occurrence: None)
  Receive Date: 20060811
  Receipt Date: 20060731
  Transmission Date: 20061208
  Serious: Yes (Hospitalization)
  Sender: FDA-Public Use
  Company Number: 2004028386

PATIENT
  Age: 63 Year
  Sex: Male

DRUGS (4)
  1. ATORVASTATIN CALCIUM [Suspect]
     Indication: DYSLIPIDAEMIA
     Dosage: 20 MG (20 MG, 1 IN 1 D), ORAL
     Route: 048
     Dates: start: 20011101
  2. PANTOZOL (PANTOPRAZOLE SODIUM) [Concomitant]
  3. ACETYLSALICYLIC ACID SRT [Concomitant]
  4. EZETROL (EZETIMIBE) [Concomitant]

REACTIONS (3)
  - ARRHYTHMIA [None]
  - ARTERIAL OCCLUSIVE DISEASE [None]
  - CHEST PAIN [None]
